FAERS Safety Report 8242239-3 (Version None)
Quarter: 2012Q1

REPORT INFORMATION
  Report Type: 
  Country: None (occurrence: None)
  Receive Date: 20120314
  Receipt Date: 20100907
  Transmission Date: 20120608
  Serious: Yes (Other)
  Sender: FDA-Public Use
  Company Number: PHHY2011US59801

PATIENT
  Age: 15 Year
  Sex: Female

DRUGS (1)
  1. FANAPT [Suspect]
     Dosage: 6 MG, ORAL ; ORAL
     Route: 048

REACTIONS (2)
  - SEDATION [None]
  - PALPITATIONS [None]
